FAERS Safety Report 14940702 (Version 19)
Quarter: 2019Q1

REPORT INFORMATION
  Report Type: Spontaneous
  Country: US (occurrence: US)
  Receive Date: 20180525
  Receipt Date: 20190110
  Transmission Date: 20190417
  Serious: Yes (Hospitalization)
  Sender: FDA-Public Use
  Company Number: US-ACTELION-A-NJ2018-171875

PATIENT
  Age: 19 Year
  Sex: Female
  Weight: 47.62 kg

DRUGS (7)
  1. VELETRI [Suspect]
     Active Substance: EPOPROSTENOL
     Indication: PULMONARY ARTERIAL HYPERTENSION
     Dosage: 68 NG/KG, PER MIN
     Route: 042
  2. VELETRI [Suspect]
     Active Substance: EPOPROSTENOL
     Dosage: 68 NG/KG, PER MIN
     Route: 042
  3. ADCIRCA [Concomitant]
     Active Substance: TADALAFIL
  4. WARFARIN [Concomitant]
     Active Substance: WARFARIN
  5. OPSUMIT [Suspect]
     Active Substance: MACITENTAN
     Indication: PULMONARY ARTERIAL HYPERTENSION
     Dosage: 10 MG, QD
     Route: 048
     Dates: start: 201804
  6. REMODULIN [Concomitant]
     Active Substance: TREPROSTINIL
  7. VELETRI [Suspect]
     Active Substance: EPOPROSTENOL
     Dosage: UNK
     Route: 042
     Dates: start: 201512

REACTIONS (20)
  - Depressed mood [Unknown]
  - Rhinorrhoea [Unknown]
  - Syncope [Unknown]
  - Dehydration [Unknown]
  - Pain in jaw [Recovered/Resolved]
  - Pain in extremity [Recovering/Resolving]
  - Dyspnoea exertional [Not Recovered/Not Resolved]
  - Diarrhoea [Recovering/Resolving]
  - Sinus disorder [Unknown]
  - Chills [Unknown]
  - Psychiatric symptom [Unknown]
  - Peripheral swelling [Recovering/Resolving]
  - Nasopharyngitis [Unknown]
  - Pyrexia [Unknown]
  - Catheter site erythema [Unknown]
  - Influenza like illness [Unknown]
  - Catheter site inflammation [Unknown]
  - Complication associated with device [Unknown]
  - Depression [Unknown]
  - Malaise [Unknown]

NARRATIVE: CASE EVENT DATE: 201804
